FAERS Safety Report 6041151-8 (Version None)
Quarter: 2009Q1

REPORT INFORMATION
  Report Type: 
  Country: None (occurrence: None)
  Receive Date: 20090116
  Receipt Date: 20080905
  Transmission Date: 20090719
  Serious: No
  Sender: FDA-Public Use
  Company Number: US-BRISTOL-MYERS SQUIBB COMPANY-14326565

PATIENT

DRUGS (1)
  1. ABILIFY [Suspect]

REACTIONS (5)
  - AGITATION [None]
  - DEPRESSION [None]
  - MUSCLE SPASMS [None]
  - VISION BLURRED [None]
  - WITHDRAWAL SYNDROME [None]
